FAERS Safety Report 7562063-4 (Version None)
Quarter: 2011Q2

REPORT INFORMATION
  Report Type: 
  Country: None (occurrence: None)
  Receive Date: 20110622
  Receipt Date: 20090729
  Transmission Date: 20111010
  Serious: Yes (Hospitalization)
  Sender: FDA-Public Use
  Company Number: PHHY2009DE68660

PATIENT
  Sex: Female
  Weight: 71 kg

DRUGS (3)
  1. SIMVASTATIN [Concomitant]
     Dosage: 20 MG, QD
  2. NITRENDIPINE [Concomitant]
     Dosage: 20 MG, BID
  3. SANDOSTATIN LAR [Suspect]
     Indication: ACROMEGALY
     Dosage: 30 MG, UNK
     Route: 030
     Dates: start: 20070801

REACTIONS (1)
  - GENERAL PHYSICAL HEALTH DETERIORATION [None]
